FAERS Safety Report 9484816 (Version 1)
Quarter: 2013Q3

REPORT INFORMATION
  Report Type: Spontaneous
  Country: GB (occurrence: GB)
  Receive Date: 20130828
  Receipt Date: 20130828
  Transmission Date: 20140515
  Serious: Yes (Other)
  Sender: FDA-Public Use
  Company Number: GB-PFIZER INC-2013243587

PATIENT
  Age: 49 Year
  Sex: Male

DRUGS (2)
  1. ALFUZOSIN [Suspect]
     Indication: URINE FLOW DECREASED
     Dosage: 10 MG, UNK
     Route: 048
     Dates: start: 200902, end: 201009
  2. BISOPROLOL FUMARATE [Concomitant]
     Indication: ATRIAL FIBRILLATION
     Dosage: 3.75 MG, UNK
     Route: 048
     Dates: start: 200306

REACTIONS (3)
  - Retrograde ejaculation [Not Recovered/Not Resolved]
  - Infertility male [Not Recovered/Not Resolved]
  - Infertility [Not Recovered/Not Resolved]
